FAERS Safety Report 9330325 (Version 4)
Quarter: 2013Q4

REPORT INFORMATION
  Report Type: Report from Study
  Country: IL (occurrence: IL)
  Receive Date: 20130605
  Receipt Date: 20131106
  Transmission Date: 20140711
  Serious: Yes (Hospitalization)
  Sender: FDA-Public Use
  Company Number: IL-ROCHE-1229327

PATIENT
  Sex: Female
  Weight: 56 kg

DRUGS (11)
  1. PERJETA [Suspect]
     Indication: BREAST CANCER METASTATIC
     Route: 042
     Dates: start: 20121101, end: 20121101
  2. PERJETA [Suspect]
     Route: 042
     Dates: start: 20130102
  3. HERCEPTIN [Suspect]
     Indication: BREAST CANCER METASTATIC
     Route: 042
     Dates: start: 20121101
  4. HERCEPTIN [Suspect]
     Route: 042
  5. TAXOTERE [Suspect]
     Indication: BREAST CANCER METASTATIC
     Route: 042
     Dates: start: 20121024
  6. PARACETAMOL [Concomitant]
     Route: 048
     Dates: start: 20111101
  7. NYTOL [Concomitant]
     Indication: HYPERSENSITIVITY
     Route: 048
     Dates: start: 20121101
  8. ZOFRAN [Concomitant]
     Indication: VOMITING
     Route: 042
  9. DEXAMETHASONE [Concomitant]
     Route: 042
  10. NORMAL SALINE [Concomitant]
     Route: 042
  11. PRAMIN (ISRAEL) [Concomitant]
     Route: 042

REACTIONS (3)
  - Femur fracture [Recovered/Resolved]
  - Ascites [Recovered/Resolved]
  - Hepatic cirrhosis [Recovered/Resolved]
